FAERS Safety Report 7683120-8 (Version None)
Quarter: 2011Q3

REPORT INFORMATION
  Report Type: 
  Country: None (occurrence: None)
  Receive Date: 20110815
  Receipt Date: 20110811
  Transmission Date: 20111222
  Serious: Yes (Other)
  Sender: FDA-Public Use
  Company Number: US-PFIZER INC-2011185714

PATIENT
  Age: 70 Year
  Sex: Female
  Weight: 76.2 kg

DRUGS (1)
  1. LYRICA [Suspect]
     Indication: NEURALGIA
     Dosage: 300 MG, UNK
     Route: 048
     Dates: start: 20110808, end: 20110808

REACTIONS (6)
  - BLOOD CHLORIDE DECREASED [None]
  - BLOOD GLUCOSE INCREASED [None]
  - BLOOD SODIUM DECREASED [None]
  - SOMNOLENCE [None]
  - HIP ARTHROPLASTY [None]
  - BLOOD CALCIUM DECREASED [None]
